FAERS Safety Report 5892945-0 (Version None)
Quarter: 2008Q3

REPORT INFORMATION
  Report Type: 
  Country: None (occurrence: None)
  Receive Date: 20080919
  Receipt Date: 20080908
  Transmission Date: 20090109
  Serious: Yes (Death, Other)
  Sender: FDA-Public Use
  Company Number: GXKR2008JP08577

PATIENT
  Age: 48 Year
  Sex: Male

DRUGS (5)
  1. METHYLPREDNISOLONE [Suspect]
     Indication: GLOMERULONEPHRITIS RAPIDLY PROGRESSIVE
     Dosage: 0.5 G, QD, INTRAVENOUS
     Route: 042
  2. PREDNISOLONE [Suspect]
     Indication: GLOMERULONEPHRITIS RAPIDLY PROGRESSIVE
     Dosage: 30 MG, QD, ORAL, 20 MG, QD, ORAL
     Route: 048
  3. PREDNISOLONE [Suspect]
     Indication: GLOMERULONEPHRITIS RAPIDLY PROGRESSIVE
     Dosage: 30 MG, QD, ORAL, 20 MG, QD, ORAL
     Route: 048
  4. SULTAMICILLIN (SULTAMICILLIN) [Concomitant]
  5. MEROPENEM (MEROPENEM) [Concomitant]

REACTIONS (6)
  - ARTERIAL RUPTURE [None]
  - ASCITES [None]
  - CARDIAC ARREST [None]
  - DISEASE PROGRESSION [None]
  - INFECTIVE ANEURYSM [None]
  - SHOCK [None]
